FAERS Safety Report 5070334-9 (Version None)
Quarter: 2006Q3

REPORT INFORMATION
  Report Type: 
  Country: None (occurrence: None)
  Receive Date: 20060731
  Receipt Date: 20060718
  Transmission Date: 20061208
  Serious: Yes (Other)
  Sender: FDA-Public Use
  Company Number: 2006075864

PATIENT
  Age: 32 Year
  Sex: Female
  Weight: 46 kg

DRUGS (2)
  1. SERTRALINE [Suspect]
     Indication: DEPRESSION
     Dosage: 50 MG (50 MG, 1 IN 1 D) ORAL
     Route: 048
     Dates: start: 20060601
  2. FLOUXETINE [Concomitant]

REACTIONS (5)
  - CONTUSION [None]
  - MALAISE [None]
  - PERIORBITAL HAEMATOMA [None]
  - THROMBOCYTOPENIA [None]
  - VOMITING [None]
